FAERS Safety Report 4796423-1 (Version None)
Quarter: 2005Q4

REPORT INFORMATION
  Report Type: 
  Country: None (occurrence: None)
  Receive Date: 20051007
  Receipt Date: 20050927
  Transmission Date: 20060501
  Serious: Yes (Hospitalization)
  Sender: FDA-Public Use
  Company Number: 218098

PATIENT
  Age: 39 Year
  Sex: Female

DRUGS (7)
  1. RITUXAN [Suspect]
     Indication: NON-HODGKIN'S LYMPHOMA
     Dosage: 600 MG, INTRAVENOUS
     Route: 042
     Dates: start: 20020201, end: 20020424
  2. CYCLOPHOSPHAMIDE [Suspect]
     Indication: NON-HODGKIN'S LYMPHOMA
     Dosage: 70 MG, DAY 1, INTRAVENOUS
     Route: 042
     Dates: start: 20020204, end: 20020507
  3. DOXORUBICIN HCL [Suspect]
     Indication: NON-HODGKIN'S LYMPHOMA
     Dosage: 900 MG, DAY 1, INTRAVENOUS
     Route: 042
     Dates: start: 20020204, end: 20020507
  4. VINCRISTINE [Suspect]
     Indication: NON-HODGKIN'S LYMPHOMA
     Dosage: 2 MG, DAY 1, INTRAVENOUS
     Route: 042
     Dates: start: 20020204, end: 20020507
  5. PREDNISONE [Suspect]
     Indication: NON-HODGKIN'S LYMPHOMA
     Dosage: 70 MG, DAY 1-5, ORAL
     Route: 048
     Dates: start: 20020204, end: 20020507
  6. PYRINAZIN (JAPAN) (ACETAMINOPHEN) [Concomitant]
  7. VENA                    (DIPHENHYDRAMINE HYDROCHLORIDE) [Concomitant]

REACTIONS (2)
  - ANAEMIA [None]
  - WHITE BLOOD CELL COUNT DECREASED [None]
